FAERS Safety Report 14560959 (Version 2)
Quarter: 2018Q1

REPORT INFORMATION
  Report Type: Spontaneous
  Country: SE (occurrence: SE)
  Receive Date: 20180222
  Receipt Date: 20180326
  Transmission Date: 20180509
  Serious: Yes (Other)
  Sender: FDA-Public Use
  Company Number: SE-BIOGEN-2018BI00527333

PATIENT
  Age: 20 Year
  Sex: Female

DRUGS (1)
  1. TYSABRI [Suspect]
     Active Substance: NATALIZUMAB
     Indication: MULTIPLE SCLEROSIS
     Route: 065
     Dates: start: 201611

REACTIONS (4)
  - Abscess neck [Unknown]
  - Underweight [Unknown]
  - Prescribed underdose [Unknown]
  - HIV infection [Not Recovered/Not Resolved]

NARRATIVE: CASE EVENT DATE: 2017
